FAERS Safety Report 24172505 (Version 1)
Quarter: 2024Q3

REPORT INFORMATION
  Report Type: Report from Study
  Country: CO (occurrence: CO)
  Receive Date: 20240805
  Receipt Date: 20240805
  Transmission Date: 20241017
  Serious: Yes (Hospitalization, Other)
  Sender: ABBVIE
  Company Number: CO-ABBVIE-5862775

PATIENT
  Age: 67 Year
  Sex: Male
  Weight: 56 kg

DRUGS (10)
  1. BOTOX [Suspect]
     Active Substance: ONABOTULINUMTOXINA
     Indication: Muscle spasticity
     Dosage: TIME INTERVAL: AS NECESSARY: FREQUENCY EVERY THREE MONTH?FORM STRENGTH: 100 UNIT
     Route: 030
     Dates: start: 20230906
  2. ASPIRIN [Concomitant]
     Active Substance: ASPIRIN
     Indication: Product used for unknown indication
     Dosage: UNKNOW
     Route: 048
     Dates: start: 2023
  3. ATORVASTATIN [Concomitant]
     Active Substance: ATORVASTATIN
     Indication: Blood cholesterol
     Dosage: FORM STRENGTH: 40 MILLIGRAM
     Route: 048
  4. LOSARTAN [Concomitant]
     Active Substance: LOSARTAN
     Indication: Hypertension
     Dosage: UNKNOW
     Route: 048
     Dates: start: 2021
  5. OMEPRAZOLE [Concomitant]
     Active Substance: OMEPRAZOLE
     Indication: Gastrointestinal disorder
     Dosage: START DATE TEXT: 4 OR 5 YEARS AGO
     Route: 048
  6. IPRATROPIUM BROMIDE [Concomitant]
     Active Substance: IPRATROPIUM BROMIDE\IPRATROPIUM BROMIDE ANHYDROUS
     Indication: Obstructive airways disorder
     Dosage: UNKNOW
     Route: 055
     Dates: start: 2021
  7. PREGABALIN [Concomitant]
     Active Substance: PREGABALIN
     Indication: Pain
     Dosage: FORM STRENGTH 75 MILLIGRAM
     Route: 048
     Dates: start: 2023, end: 2024
  8. TRAZODONE [Concomitant]
     Active Substance: TRAZODONE HYDROCHLORIDE
     Indication: Muscle relaxant therapy
     Dosage: ORM STRENGTH: 50 MILLIGRAM
     Route: 048
     Dates: start: 2023
  9. PREDNISOLONE [Concomitant]
     Active Substance: PREDNISOLONE
     Indication: Symptomatic treatment
     Route: 042
     Dates: start: 202405, end: 202405
  10. OXYGEN [Concomitant]
     Active Substance: OXYGEN
     Indication: Pulmonary congestion
     Route: 055
     Dates: start: 2021

REACTIONS (12)
  - Obstructive airways disorder [Unknown]
  - Vomiting [Not Recovered/Not Resolved]
  - Oxygen saturation decreased [Recovered/Resolved]
  - Cough [Recovered/Resolved]
  - Respiratory distress [Not Recovered/Not Resolved]
  - Respiratory distress [Recovered/Resolved]
  - Vomiting [Recovered/Resolved]
  - Pain in extremity [Not Recovered/Not Resolved]
  - Oxygen saturation decreased [Not Recovered/Not Resolved]
  - Cough [Not Recovered/Not Resolved]
  - Pulmonary mass [Not Recovered/Not Resolved]
  - Bone pain [Not Recovered/Not Resolved]

NARRATIVE: CASE EVENT DATE: 20240501
